FAERS Safety Report 20891502 (Version 3)
Quarter: 2022Q3

REPORT INFORMATION
  Report Type: Other
  Country: US (occurrence: None)
  Receive Date: 20220530
  Receipt Date: 20220725
  Transmission Date: 20221026
  Serious: Yes (Hospitalization)
  Sender: FDA-Public Use
  Company Number: US-ROCHE-2816140

PATIENT
  Sex: Male

DRUGS (2)
  1. ZELBORAF [Suspect]
     Active Substance: VEMURAFENIB
     Indication: Colon cancer
     Dosage: (TAKE 1 TABLET BY MOUTH EVERY 12 HOURS (TAKE DOSE APPROXIMATELY 12 HOURS APART WITH A FULL GLASS OF
     Route: 048
     Dates: start: 20220521
  2. ZELBORAF [Suspect]
     Active Substance: VEMURAFENIB
     Indication: Colorectal cancer metastatic

REACTIONS (3)
  - Off label use [Unknown]
  - Nephrolithiasis [Unknown]
  - Sepsis [Unknown]
